FAERS Safety Report 20157488 (Version 1)
Quarter: 2021Q4

REPORT INFORMATION
  Report Type: Spontaneous
  Country: US (occurrence: US)
  Receive Date: 20211207
  Receipt Date: 20211207
  Transmission Date: 20220304
  Serious: Yes (Other)
  Sender: FDA-Public Use
  Company Number: US-TAKEDA-2021TJP124550

PATIENT
  Age: 23 Year
  Sex: Female

DRUGS (1)
  1. LEUPROLIDE ACETATE [Suspect]
     Active Substance: LEUPROLIDE ACETATE
     Indication: Surrogate mother
     Route: 065

REACTIONS (2)
  - Intracranial pressure increased [Recovered/Resolved]
  - Vision blurred [Unknown]
